FAERS Safety Report 5897144-4 (Version None)
Quarter: 2008Q3

REPORT INFORMATION
  Report Type: 
  Country: None (occurrence: None)
  Receive Date: 20080924
  Receipt Date: 20080430
  Transmission Date: 20090109
  Serious: Yes (Other)
  Sender: FDA-Public Use
  Company Number: US-ASTRAZENECA-2008UW08799

PATIENT
  Age: 46 Year
  Sex: Female
  Weight: 104.3 kg

DRUGS (4)
  1. SEROQUEL [Suspect]
     Indication: SCHIZOPHRENIA
     Route: 048
     Dates: start: 20060101
  2. ABILIFY [Concomitant]
  3. BENADRYL [Concomitant]
  4. ATENOLOL [Concomitant]

REACTIONS (1)
  - HYPOTHYROIDISM [None]
